FAERS Safety Report 5146126-9 (Version None)
Quarter: 2006Q4

REPORT INFORMATION
  Report Type: 
  Country: None (occurrence: None)
  Receive Date: 20061108
  Receipt Date: 20061102
  Transmission Date: 20070319
  Serious: Yes (Death, Hospitalization)
  Sender: FDA-Public Use
  Company Number: JP-MERCK-0611USA01684

PATIENT

DRUGS (5)
  1. PEPCID RPD [Suspect]
     Route: 048
  2. LIPITOR [Suspect]
     Route: 048
  3. ASPIRIN [Suspect]
     Route: 048
  4. VASOTEC [Suspect]
     Route: 048
  5. PLAVIX [Suspect]
     Route: 048

REACTIONS (1)
  - OCULOMUCOCUTANEOUS SYNDROME [None]
